FAERS Safety Report 6874805-1 (Version None)
Quarter: 2010Q3

REPORT INFORMATION
  Report Type: 
  Country: None (occurrence: None)
  Receive Date: 20100723
  Receipt Date: 20100712
  Transmission Date: 20110219
  Serious: Yes (Hospitalization)
  Sender: FDA-Public Use
  Company Number: 530#6#2007-00038

PATIENT
  Sex: Male
  Weight: 125 kg

DRUGS (16)
  1. NEUPRO [Suspect]
     Indication: PARKINSON'S DISEASE
     Dosage: (2 MG QD TRANSDERMAL) , (4 MG QD TRANSDERMAL)
     Route: 062
     Dates: start: 20070402, end: 20070405
  2. NEUPRO [Suspect]
     Indication: PARKINSON'S DISEASE
     Dosage: (2 MG QD TRANSDERMAL) , (4 MG QD TRANSDERMAL)
     Route: 062
     Dates: start: 20070406, end: 20070420
  3. AMANTADINE HCL [Suspect]
     Indication: PARKINSON'S DISEASE
     Dosage: (100 MG QD ORAL), (200 MG QD ORAL) , (100 MG TID, OTHER 2-1-0 ORAL)
     Route: 048
     Dates: start: 20070127, end: 20070101
  4. AMANTADINE HCL [Suspect]
     Indication: PARKINSON'S DISEASE
     Dosage: (100 MG QD ORAL), (200 MG QD ORAL) , (100 MG TID, OTHER 2-1-0 ORAL)
     Route: 048
     Dates: start: 20070113, end: 20070119
  5. AMANTADINE HCL [Suspect]
     Indication: PARKINSON'S DISEASE
     Dosage: (100 MG QD ORAL), (200 MG QD ORAL) , (100 MG TID, OTHER 2-1-0 ORAL)
     Route: 048
     Dates: start: 20070120, end: 20070126
  6. CARBIDOPA AND LEVODOPA [Suspect]
     Indication: PARKINSON'S DISEASE
     Dosage: (DOSE ORAL) , (100/25 AS GIVEN DOSE, FREQUENCY - OTHER  1/2-0-0 ORAL) , (100/25 AS GIVEN DOSE, FREQU
     Route: 048
     Dates: start: 20060101, end: 20060101
  7. CARBIDOPA AND LEVODOPA [Suspect]
     Indication: PARKINSON'S DISEASE
     Dosage: (DOSE ORAL) , (100/25 AS GIVEN DOSE, FREQUENCY - OTHER  1/2-0-0 ORAL) , (100/25 AS GIVEN DOSE, FREQU
     Route: 048
     Dates: start: 20070423, end: 20070425
  8. CARBIDOPA AND LEVODOPA [Suspect]
     Indication: PARKINSON'S DISEASE
     Dosage: (DOSE ORAL) , (100/25 AS GIVEN DOSE, FREQUENCY - OTHER  1/2-0-0 ORAL) , (100/25 AS GIVEN DOSE, FREQU
     Route: 048
     Dates: start: 20070426, end: 20070428
  9. CARBIDOPA AND LEVODOPA [Suspect]
     Indication: PARKINSON'S DISEASE
     Dosage: (DOSE ORAL) , (100/25 AS GIVEN DOSE, FREQUENCY - OTHER  1/2-0-0 ORAL) , (100/25 AS GIVEN DOSE, FREQU
     Route: 048
     Dates: start: 20070429, end: 20070703
  10. SELEGILINE HCL [Suspect]
     Indication: PARKINSON'S DISEASE
     Dosage: (5 MG QD ORAL)
     Route: 048
     Dates: start: 20070710, end: 20070101
  11. ISOSORBIDE DINITRATE [Concomitant]
  12. SIMVASTATIN [Concomitant]
  13. INSULIN HUMAN [Concomitant]
  14. ASPIRIN [Concomitant]
  15. ENALAGAMMA [Concomitant]
  16. TORASEMID [Concomitant]

REACTIONS (5)
  - FATIGUE [None]
  - HYPERGLYCAEMIA [None]
  - INSULIN RESISTANCE [None]
  - RENAL FAILURE [None]
  - SLEEP ATTACKS [None]
